FAERS Safety Report 12545519 (Version 1)
Quarter: 2016Q3

REPORT INFORMATION
  Report Type: Report from Study
  Country: US (occurrence: US)
  Receive Date: 20160711
  Receipt Date: 20160711
  Transmission Date: 20161109
  Serious: No
  Sender: FDA-Public Use
  Company Number: US-AMGEN-USASL2016083903

PATIENT
  Age: 59 Year
  Sex: Female

DRUGS (1)
  1. ENBREL [Suspect]
     Active Substance: ETANERCEPT
     Indication: PSORIATIC ARTHROPATHY
     Dosage: 50 MG, QWK
     Route: 065
     Dates: start: 2011

REACTIONS (7)
  - Condition aggravated [Unknown]
  - Psoriasis [Recovering/Resolving]
  - Influenza [Unknown]
  - Spondylitis [Not Recovered/Not Resolved]
  - Therapeutic response decreased [Unknown]
  - Injection site discomfort [Unknown]
  - Nasopharyngitis [Unknown]
